FAERS Safety Report 7911628-6 (Version None)
Quarter: 2011Q4

REPORT INFORMATION
  Report Type: 
  Country: None (occurrence: None)
  Receive Date: 20111114
  Receipt Date: 20111114
  Transmission Date: 20120403
  Serious: No
  Sender: FDA-Public Use
  Company Number: None

PATIENT
  Age: 49 Year
  Sex: Female
  Weight: 81.646 kg

DRUGS (1)
  1. NEO-POLY-BAC OPHT OINTMENT [Suspect]
     Indication: CONJUNCTIVITIS ALLERGIC
     Dosage: RIBBON INSIDE BOTTOM EYELID
     Route: 047
     Dates: start: 20111109, end: 20111109

REACTIONS (5)
  - CONJUNCTIVITIS [None]
  - EYELID OEDEMA [None]
  - EYE DISCHARGE [None]
  - DRUG HYPERSENSITIVITY [None]
  - IMPAIRED WORK ABILITY [None]
